FAERS Safety Report 17317859 (Version 1)
Quarter: 2020Q1

REPORT INFORMATION
  Report Type: Spontaneous
  Country: FR (occurrence: FR)
  Receive Date: 20200124
  Receipt Date: 20200124
  Transmission Date: 20200409
  Serious: Yes (Hospitalization)
  Sender: FDA-Public Use
  Company Number: FR-PFIZER INC-2020028983

PATIENT
  Age: 7 Year
  Sex: Male
  Weight: 20.5 kg

DRUGS (2)
  1. SYMBICORT [Suspect]
     Active Substance: BUDESONIDE\FORMOTEROL FUMARATE DIHYDRATE
     Indication: ASTHMA
     Dosage: 2 DF, 1X/DAY
     Route: 055
     Dates: start: 20190128, end: 20191212
  2. ZITHROMAX [Suspect]
     Active Substance: AZITHROMYCIN DIHYDRATE
     Indication: ASTHMA
     Dosage: 250 MG, ALTERNATE DAY
     Route: 048
     Dates: start: 20191010, end: 20191212

REACTIONS (7)
  - Headache [Recovered/Resolved]
  - Diplopia [Recovered/Resolved]
  - VIth nerve paralysis [Recovering/Resolving]
  - Papilloedema [Recovering/Resolving]
  - Strabismus [Recovered/Resolved]
  - Intracranial pressure increased [Recovering/Resolving]
  - Visual acuity reduced [Recovering/Resolving]

NARRATIVE: CASE EVENT DATE: 201911
